FAERS Safety Report 5675201-5 (Version None)
Quarter: 2008Q1

REPORT INFORMATION
  Report Type: 
  Country: None (occurrence: None)
  Receive Date: 20080320
  Receipt Date: 20080317
  Transmission Date: 20080703
  Serious: Yes (Other)
  Sender: FDA-Public Use
  Company Number: US-GILEAD-2008-0015358

PATIENT
  Age: 47 Year
  Sex: Female

DRUGS (3)
  1. VIREAD [Suspect]
     Indication: HIV INFECTION
  2. TRUVADA [Suspect]
     Indication: HIV INFECTION
  3. PROTEASE INHIBITOR [Concomitant]

REACTIONS (2)
  - OVERDOSE [None]
  - RENAL FAILURE [None]
